FAERS Safety Report 4491694-3 (Version None)
Quarter: 2004Q4

REPORT INFORMATION
  Report Type: 
  Country: None (occurrence: None)
  Receive Date: 20041103
  Receipt Date: 20041022
  Transmission Date: 20050328
  Serious: Yes (Hospitalization)
  Sender: FDA-Public Use
  Company Number: IN-ROCHE-384166

PATIENT
  Age: 17 Day
  Sex: Male

DRUGS (3)
  1. CEFTRIAXONE SODIUM [Suspect]
     Indication: SEPSIS
     Route: 065
  2. AMIKACIN [Concomitant]
     Indication: SEPSIS
  3. VITAMIN K [Concomitant]
     Route: 030

REACTIONS (3)
  - CHOLELITHIASIS [None]
  - CHOLESTASIS [None]
  - NEONATAL DISORDER [None]
